FAERS Safety Report 8327893-X (Version None)
Quarter: 2012Q2

REPORT INFORMATION
  Report Type: 
  Country: None (occurrence: None)
  Receive Date: 20120502
  Receipt Date: 20120423
  Transmission Date: 20120825
  Serious: Yes (Hospitalization)
  Sender: FDA-Public Use
  Company Number: CH-VERTEX PHARMACEUTICALS INC.-000000000000000552

PATIENT
  Age: 62 Year
  Sex: Female

DRUGS (3)
  1. COPEGUS [Concomitant]
     Indication: ANTIVIRAL PROPHYLAXIS
     Route: 065
     Dates: start: 20120202
  2. INCIVO (TELAPREVIR) [Suspect]
     Indication: HEPATITIS C
     Dosage: DOSAGE FORM: TABLET
     Route: 065
     Dates: start: 20120202
  3. PEGASYS [Concomitant]
     Indication: ANTIVIRAL PROPHYLAXIS
     Dosage: DOSAGE FORM: UNSPECIFIED
     Route: 065
     Dates: start: 20120202

REACTIONS (3)
  - DYSPNOEA [None]
  - APNOEA [None]
  - WEIGHT INCREASED [None]
